FAERS Safety Report 17635374 (Version 2)
Quarter: 2020Q2

REPORT INFORMATION
  Report Type: Spontaneous
  Country: BR (occurrence: BR)
  Receive Date: 20200406
  Receipt Date: 20200409
  Transmission Date: 20200713
  Serious: Yes (Other)
  Sender: FDA-Public Use
  Company Number: BR-DSJP-DSU-2020-110706

PATIENT

DRUGS (1)
  1. OLMETEC [Suspect]
     Active Substance: OLMESARTAN MEDOXOMIL
     Indication: BLOOD PRESSURE FLUCTUATION
     Dosage: 20 MG, QD
     Route: 065
     Dates: start: 202002

REACTIONS (4)
  - Lymphoma [Unknown]
  - Renal disorder [Unknown]
  - Decreased immune responsiveness [Unknown]
  - Product dose omission [Unknown]
